FAERS Safety Report 17532998 (Version 1)
Quarter: 2020Q1

REPORT INFORMATION
  Report Type: Spontaneous
  Country: US (occurrence: US)
  Receive Date: 20200312
  Receipt Date: 20200312
  Transmission Date: 20200409
  Serious: No
  Sender: FDA-Public Use
  Company Number: US-BAYER-2020-037565

PATIENT
  Age: 24 Year
  Sex: Male

DRUGS (3)
  1. CLARITIN [Suspect]
     Active Substance: LORATADINE
     Indication: NASOPHARYNGITIS
     Dosage: 2 DF
     Route: 048
     Dates: start: 202002
  2. VICKS NYQUIL [Concomitant]
     Active Substance: ACETAMINOPHEN\DEXTROMETHORPHAN HYDROBROMIDE\DOXYLAMINE SUCCINATE
     Dosage: UNK
  3. CLARITIN [Suspect]
     Active Substance: LORATADINE
     Indication: HYPERSENSITIVITY
     Dosage: 1 DF
     Route: 048
     Dates: start: 20200221

REACTIONS (6)
  - Periorbital swelling [Unknown]
  - Sneezing [Unknown]
  - Drug ineffective [Unknown]
  - Ocular hyperaemia [Unknown]
  - Extra dose administered [Unknown]
  - Swelling face [Unknown]

NARRATIVE: CASE EVENT DATE: 202002
